FAERS Safety Report 7483721-6 (Version None)
Quarter: 2011Q2

REPORT INFORMATION
  Report Type: 
  Country: None (occurrence: None)
  Receive Date: 20110513
  Receipt Date: 20110513
  Transmission Date: 20111010
  Serious: Yes (Hospitalization)
  Sender: FDA-Public Use
  Company Number: None

PATIENT
  Sex: Female
  Weight: 49 kg

DRUGS (3)
  1. CISPLATIN [Suspect]
     Dosage: 142 MG
     Dates: end: 20110407
  2. BETHANECOL [Concomitant]
  3. TAXOL [Suspect]
     Dosage: 192 MG
     Dates: end: 20110406

REACTIONS (2)
  - URINARY TRACT INFECTION ENTEROCOCCAL [None]
  - NEUTROPHIL COUNT DECREASED [None]
